FAERS Safety Report 4731240-X (Version None)
Quarter: 2005Q3

REPORT INFORMATION
  Report Type: 
  Country: None (occurrence: None)
  Receive Date: 20050802
  Receipt Date: 20050722
  Transmission Date: 20060218
  Serious: Yes (Hospitalization, Other)
  Sender: FDA-Public Use
  Company Number: US-JNJFOC-20050606347

PATIENT
  Sex: Female
  Weight: 108.86 kg

DRUGS (21)
  1. INFLIXIMAB [Suspect]
     Indication: RHEUMATOID ARTHRITIS
     Route: 042
  2. CALCIUM GLUCONATE [Concomitant]
     Dosage: 4 DOSES = 4 TABLETS
  3. CARTIA XT [Concomitant]
  4. FOLIC ACID [Concomitant]
  5. HYDROCODONE [Concomitant]
  6. LYSINE [Concomitant]
  7. METHOTREXATE [Concomitant]
  8. MULTI-VITAMIN [Concomitant]
  9. MULTI-VITAMIN [Concomitant]
  10. MULTI-VITAMIN [Concomitant]
  11. MULTI-VITAMIN [Concomitant]
  12. MULTI-VITAMIN [Concomitant]
  13. MULTI-VITAMIN [Concomitant]
  14. MULTI-VITAMIN [Concomitant]
  15. MULTI-VITAMIN [Concomitant]
  16. PREDNISONE [Concomitant]
  17. SYNTHROID [Concomitant]
  18. ZESTORETIC [Concomitant]
  19. ZESTORETIC [Concomitant]
  20. OSTEO-BIFLOX [Concomitant]
  21. OSTEO-BIFLOX [Concomitant]

REACTIONS (1)
  - NON-HODGKIN'S LYMPHOMA [None]
